FAERS Safety Report 5526733-1 (Version None)
Quarter: 2007Q4

REPORT INFORMATION
  Report Type: 
  Country: None (occurrence: None)
  Receive Date: 20071127
  Receipt Date: 20071116
  Transmission Date: 20080405
  Serious: Yes (Hospitalization)
  Sender: FDA-Public Use
  Company Number: US-MERCK-0711USA04048

PATIENT
  Sex: Female

DRUGS (11)
  1. HYDRODIURIL [Suspect]
     Route: 048
  2. LEVOXYL [Concomitant]
     Route: 048
  3. HYOSCYAMINE [Suspect]
     Route: 060
  4. TRILEPTAL [Concomitant]
     Route: 065
  5. CARTIA XT [Suspect]
     Route: 048
  6. ULTRAM [Suspect]
     Route: 065
  7. IMIPRAMINE HYDROCHLORIDE [Suspect]
     Route: 048
  8. CLONAZEPAM [Suspect]
     Route: 048
  9. PRIMIDONE [Concomitant]
     Route: 048
  10. DEPAKOTE [Concomitant]
     Route: 048
  11. FLEXERIL [Suspect]
     Route: 048

REACTIONS (18)
  - ASTHENIA [None]
  - BALANCE DISORDER [None]
  - BLOOD PRESSURE ORTHOSTATIC [None]
  - CHEST PAIN [None]
  - COORDINATION ABNORMAL [None]
  - DEHYDRATION [None]
  - DIZZINESS [None]
  - DYSURIA [None]
  - FALL [None]
  - FATIGUE [None]
  - GAIT DISTURBANCE [None]
  - HEART RATE IRREGULAR [None]
  - HYPOAESTHESIA [None]
  - MONOPARESIS [None]
  - PAIN IN EXTREMITY [None]
  - POSITIVE ROMBERGISM [None]
  - SOMNOLENCE [None]
  - TREMOR [None]
